FAERS Safety Report 20092777 (Version 1)
Quarter: 2021Q4

REPORT INFORMATION
  Report Type: Spontaneous
  Country: TR (occurrence: TR)
  Receive Date: 20211120
  Receipt Date: 20211120
  Transmission Date: 20220303
  Serious: Yes (Other)
  Sender: FDA-Public Use
  Company Number: TR-PRA-000088

PATIENT
  Age: 75 Year

DRUGS (2)
  1. METHYLPREDNISOLONE [Suspect]
     Active Substance: METHYLPREDNISOLONE
     Indication: Immune thrombocytopenia
     Route: 065
     Dates: start: 202102, end: 202103
  2. IMMUNE GLOBULIN NOS [Suspect]
     Active Substance: IMMUNE GLOBULIN NOS
     Indication: Immune thrombocytopenia
     Dosage: 1 G/KG/DAY IV
     Route: 042
     Dates: start: 202102, end: 202102

REACTIONS (2)
  - Drug effective for unapproved indication [Unknown]
  - Seizure [Unknown]

NARRATIVE: CASE EVENT DATE: 20210201
